FAERS Safety Report 17636553 (Version 1)
Quarter: 2020Q2

REPORT INFORMATION
  Report Type: Spontaneous
  Country: GB (occurrence: GB)
  Receive Date: 20200407
  Receipt Date: 20200407
  Transmission Date: 20200713
  Serious: Yes (Hospitalization)
  Sender: FDA-Public Use
  Company Number: GB-TEVA-2020-GB-1218834

PATIENT
  Age: 80 Year
  Sex: Male

DRUGS (6)
  1. CALCIUM AND COLECALCIFEROL [Concomitant]
     Dosage: 400UNIT/1.5G , 2 DOSAGE FORMS
     Route: 048
     Dates: start: 20191230
  2. CLOPIDOGREL [Concomitant]
     Active Substance: CLOPIDOGREL BISULFATE
     Dosage: 75 MG
  3. ATORVASTATIN [Concomitant]
     Active Substance: ATORVASTATIN
     Dosage: 20 MG
     Route: 048
  4. LANSOPRAZOLE. [Concomitant]
     Active Substance: LANSOPRAZOLE
     Dosage: 15 MG
  5. ALENDRONIC ACID [Concomitant]
     Active Substance: ALENDRONIC ACID
     Dosage: ON SATURDAY 70 MG
     Route: 048
     Dates: start: 20191230
  6. PREDNISOLONE. [Suspect]
     Active Substance: PREDNISOLONE
     Indication: TEMPORAL ARTERITIS
     Dosage: 60MG ONCE DAILY FOR TWO WEEKS THEN REDUCING CHART. ?WAS ON 20MG AT ADMISSION.
     Route: 048
     Dates: start: 20191230

REACTIONS (1)
  - Hyperglycaemia [Recovered/Resolved]

NARRATIVE: CASE EVENT DATE: 20200228
